FAERS Safety Report 8321143-6 (Version None)
Quarter: 2012Q2

REPORT INFORMATION
  Report Type: 
  Country: None (occurrence: None)
  Receive Date: 20120430
  Receipt Date: 20120423
  Transmission Date: 20120825
  Serious: Yes (Other)
  Sender: FDA-Public Use
  Company Number: NL-B.I. PHARMACEUTICALS,INC./RIDGEFIELD-2012-NL-00178NL

PATIENT
  Sex: Male

DRUGS (12)
  1. OTHER DIFFERENT MEDICINES (IN TOTAL 26) EVERY DAY [Concomitant]
     Dosage: EVERY DAY
  2. SPIRIVA [Suspect]
     Indication: CHRONIC OBSTRUCTIVE PULMONARY DISEASE
  3. LASIX [Concomitant]
     Indication: CARDIAC DISORDER
  4. ADVAIR DISKUS 100/50 [Concomitant]
     Indication: CHRONIC OBSTRUCTIVE PULMONARY DISEASE
     Dosage: STRENGTH: 250/50
  5. TOVIAZ [Concomitant]
     Indication: BLADDER DISORDER
  6. VERAPAMIL CALCIUM CHANNEL BLOCKER [Concomitant]
     Indication: CARDIAC DISORDER
  7. WELCHOL [Concomitant]
     Indication: ABDOMINAL DISCOMFORT
  8. NEXIUM [Concomitant]
     Indication: GASTROOESOPHAGEAL REFLUX DISEASE
  9. DIGOXIN [Concomitant]
     Indication: CARDIAC DISORDER
  10. NITROSTAT [Concomitant]
     Indication: CARDIAC DISORDER
  11. TOPROL BETABLOCKER [Concomitant]
     Indication: CARDIAC DISORDER
  12. COUMADIN [Concomitant]
     Indication: CARDIAC DISORDER

REACTIONS (6)
  - CARDIAC FAILURE [None]
  - IMMOBILE [None]
  - ECONOMIC PROBLEM [None]
  - MALAISE [None]
  - MULTI-ORGAN FAILURE [None]
  - LIFE EXPECTANCY SHORTENED [None]
